FAERS Safety Report 26210441 (Version 1)
Quarter: 2025Q4

REPORT INFORMATION
  Report Type: Spontaneous
  Country: GB (occurrence: GB)
  Receive Date: 20251229
  Receipt Date: 20251229
  Transmission Date: 20260118
  Serious: Yes (Other)
  Sender: TEVA
  Company Number: None

PATIENT
  Age: 49 Year
  Sex: Female

DRUGS (2)
  1. CLONAZEPAM [Suspect]
     Active Substance: CLONAZEPAM
     Indication: Hypertension
     Dosage: 1MG
     Route: 065
     Dates: start: 20251219, end: 20251220
  2. QUETIAPINE [Concomitant]
     Active Substance: QUETIAPINE
     Indication: Adverse drug reaction
     Dates: start: 20210308

REACTIONS (1)
  - Loss of control of legs [Recovered/Resolved with Sequelae]

NARRATIVE: CASE EVENT DATE: 20251219
